FAERS Safety Report 15250127 (Version 1)
Quarter: 2018Q3

REPORT INFORMATION
  Report Type: Spontaneous
  Country: None (occurrence: US)
  Receive Date: 20180807
  Receipt Date: 20180807
  Transmission Date: 20181010
  Serious: No
  Sender: FDA-Public Use
  Company Number: US-GALEN SPECIALTY PHARMA US LLC-AE-2018-0690

PATIENT
  Sex: Female

DRUGS (1)
  1. SYNERA [Suspect]
     Active Substance: LIDOCAINE\TETRACAINE
     Route: 061

REACTIONS (4)
  - Swelling [Unknown]
  - Product use in unapproved indication [Unknown]
  - Burning sensation [Unknown]
  - Skin reaction [Unknown]
